FAERS Safety Report 25821527 (Version 1)
Quarter: 2025Q3

REPORT INFORMATION
  Report Type: Spontaneous
  Country: US (occurrence: US)
  Receive Date: 20250919
  Receipt Date: 20250919
  Transmission Date: 20251021
  Serious: Yes (Other)
  Sender: COOPERSURGICAL
  Company Number: US-COOPERSURGICAL, INC.-2025CPS006701

PATIENT
  Sex: Female

DRUGS (1)
  1. PARAGARD T 380A [Suspect]
     Active Substance: COPPER
     Route: 015

REACTIONS (9)
  - Injury [Unknown]
  - Vaginal haemorrhage [Unknown]
  - Hypotension [Unknown]
  - Sexual life impairment [Unknown]
  - Heart rate variability decreased [Unknown]
  - Lactation insufficiency [Unknown]
  - Inflammation [Unknown]
  - Abdominal distension [Unknown]
  - Pain [Unknown]
